FAERS Safety Report 7910794-6 (Version None)
Quarter: 2011Q4

REPORT INFORMATION
  Report Type: 
  Country: None (occurrence: None)
  Receive Date: 20111112
  Receipt Date: 20111104
  Transmission Date: 20120403
  Serious: Yes (Hospitalization, Other)
  Sender: FDA-Public Use
  Company Number: US-AMGEN-USASP2011057684

PATIENT
  Age: 66 Year
  Sex: Male

DRUGS (1)
  1. ENBREL [Suspect]
     Indication: RHEUMATOID ARTHRITIS
     Dosage: 50 MG, QWK
     Dates: start: 19990601, end: 20111022

REACTIONS (8)
  - RESPIRATORY TRACT CONGESTION [None]
  - FATIGUE [None]
  - DYSPNOEA [None]
  - PRODUCTIVE COUGH [None]
  - PNEUMOTHORAX [None]
  - BACK PAIN [None]
  - NASOPHARYNGITIS [None]
  - FEELING ABNORMAL [None]
